FAERS Safety Report 5298534-3 (Version None)
Quarter: 2007Q2

REPORT INFORMATION
  Report Type: 
  Country: None (occurrence: None)
  Receive Date: 20070409
  Receipt Date: 20070329
  Transmission Date: 20071010
  Serious: Yes (Other)
  Sender: FDA-Public Use
  Company Number: 232789K06USA

PATIENT
  Age: 40 Year
  Sex: Female

DRUGS (1)
  1. REBIF [Suspect]
     Indication: MULTIPLE SCLEROSIS
     Dosage: 44 MCG, 3 IN 1 WEEKS, SUBCUTANEOUS
     Route: 058
     Dates: start: 20050219, end: 20050501

REACTIONS (4)
  - BASEDOW'S DISEASE [None]
  - EYELID PTOSIS [None]
  - HYPERTHYROIDISM [None]
  - WHITE BLOOD CELL COUNT DECREASED [None]
